FAERS Safety Report 6504445-5 (Version None)
Quarter: 2009Q4

REPORT INFORMATION
  Report Type: 
  Country: None (occurrence: None)
  Receive Date: 20091215
  Receipt Date: 20091202
  Transmission Date: 20100525
  Serious: Yes (Hospitalization)
  Sender: FDA-Public Use
  Company Number: 2009AP017305

PATIENT
  Age: 31 Year
  Sex: Female
  Weight: 84.8226 kg

DRUGS (3)
  1. NUVARING [Suspect]
     Indication: CONTRACEPTION
     Dosage: 1 DF
     Dates: start: 20060401, end: 20061101
  2. RESTORL [Concomitant]
  3. TOPROL-XL [Concomitant]

REACTIONS (7)
  - HEADACHE [None]
  - HYPERTENSION [None]
  - INTRACRANIAL VENOUS SINUS THROMBOSIS [None]
  - SUBARACHNOID HAEMORRHAGE [None]
  - SUBDURAL HAEMATOMA [None]
  - THROMBOPHLEBITIS [None]
  - TRANSVERSE SINUS THROMBOSIS [None]
